FAERS Safety Report 9124841 (Version 1)
Quarter: 2013Q1

REPORT INFORMATION
  Report Type: Spontaneous
  Country: US (occurrence: US)
  Receive Date: 20130227
  Receipt Date: 20130227
  Transmission Date: 20140127
  Serious: Yes (Hospitalization, Other)
  Sender: FDA-Public Use
  Company Number: US-AMGEN-USASP2013013279

PATIENT
  Sex: Female

DRUGS (1)
  1. ENBREL [Suspect]
     Indication: RHEUMATOID ARTHRITIS
     Dosage: 50 MG, QWK
     Dates: start: 20031001, end: 20130215

REACTIONS (4)
  - Renal failure [Not Recovered/Not Resolved]
  - Vomiting [Recovered/Resolved]
  - Blood potassium abnormal [Recovered/Resolved]
  - Blood creatinine abnormal [Recovered/Resolved]
